FAERS Safety Report 7237941-6 (Version None)
Quarter: 2011Q1

REPORT INFORMATION
  Report Type: 
  Country: None (occurrence: None)
  Receive Date: 20110119
  Receipt Date: 20110119
  Transmission Date: 20110831
  Serious: Yes (Life-Threatening)
  Sender: FDA-Public Use
  Company Number: None

PATIENT
  Age: 83 Year
  Sex: Male
  Weight: 73.3 kg

DRUGS (1)
  1. LISINOPRIL [Suspect]
     Indication: HYPERTENSION
     Dosage: 2.5 MG EVERY DAY PO
     Route: 048
     Dates: start: 20100819, end: 20101027

REACTIONS (5)
  - CONFUSIONAL STATE [None]
  - AGITATION [None]
  - ANGIOEDEMA [None]
  - DIZZINESS [None]
  - ANGINA PECTORIS [None]
